FAERS Safety Report 9226220 (Version 1)
Quarter: 2013Q2

REPORT INFORMATION
  Report Type: Spontaneous
  Country: US (occurrence: US)
  Receive Date: 20130411
  Receipt Date: 20130411
  Transmission Date: 20140414
  Serious: No
  Sender: FDA-Public Use
  Company Number: US-ASTRAZENECA-2013SE20336

PATIENT
  Age: 66 Year
  Sex: Male
  Weight: 81.6 kg

DRUGS (12)
  1. ATACAND [Suspect]
     Indication: BLOOD PRESSURE ABNORMAL
     Route: 048
  2. NEXIUM [Suspect]
     Indication: HIATUS HERNIA
     Route: 048
     Dates: start: 20121222
  3. NEXIUM [Suspect]
     Indication: GASTROOESOPHAGEAL REFLUX DISEASE
     Route: 048
     Dates: start: 20121222
  4. METOPROLOL [Suspect]
     Indication: BLOOD PRESSURE ABNORMAL
     Route: 048
     Dates: start: 2000
  5. CRESTOR [Suspect]
     Indication: BLOOD CHOLESTEROL INCREASED
     Route: 048
     Dates: start: 1986
  6. LISINOPRIL [Suspect]
     Indication: BLOOD PRESSURE ABNORMAL
     Route: 048
  7. TRIAMTERENE [Concomitant]
     Indication: DIURETIC THERAPY
     Dosage: NOT ASKED DAILY
  8. ASPIRIN [Concomitant]
     Indication: ANTICOAGULANT THERAPY
  9. PLAVIX [Concomitant]
     Indication: ANTICOAGULANT THERAPY
     Route: 048
     Dates: start: 2000
  10. TRANSENE [Concomitant]
     Indication: ANXIETY
  11. ACYCLOVIR [Concomitant]
  12. SERTRALINE [Concomitant]
     Indication: SLEEP DISORDER

REACTIONS (9)
  - Oropharyngeal pain [Recovered/Resolved]
  - Haemoptysis [Recovered/Resolved]
  - Hiatus hernia [Unknown]
  - Sinusitis [Not Recovered/Not Resolved]
  - Blood pressure fluctuation [Unknown]
  - Palpitations [Unknown]
  - Asthenia [Unknown]
  - Non-cardiac chest pain [Unknown]
  - Cough [Recovered/Resolved]
